FAERS Safety Report 9486535 (Version 1)
Quarter: 2013Q3

REPORT INFORMATION
  Report Type: Spontaneous
  Country: US (occurrence: US)
  Receive Date: 20130829
  Receipt Date: 20130829
  Transmission Date: 20140515
  Serious: Yes (Hospitalization, Other)
  Sender: FDA-Public Use
  Company Number: US-MERCK-1308USA009935

PATIENT
  Age: 56 Year
  Sex: Male

DRUGS (6)
  1. NASONEX [Suspect]
     Indication: HYPERSENSITIVITY
     Dosage: 2 SPRAYS IN EACH NOSTRIL TWICE A DAY
     Route: 045
     Dates: start: 201008
  2. FEXOFENADINE HYDROCHLORIDE [Concomitant]
  3. CRESTOR [Concomitant]
  4. MENADIONE [Concomitant]
  5. NAPROXEN [Concomitant]
  6. TRAZODONE HYDROCHLORIDE [Concomitant]

REACTIONS (11)
  - Surgery [Recovering/Resolving]
  - Post procedural complication [Unknown]
  - Suicidal ideation [Recovering/Resolving]
  - Type 2 diabetes mellitus [Recovering/Resolving]
  - Pain in extremity [Recovering/Resolving]
  - Haemorrhage [Recovering/Resolving]
  - Impaired healing [Recovering/Resolving]
  - Hyperkeratosis [Recovering/Resolving]
  - Bunion [Recovering/Resolving]
  - Inappropriate schedule of drug administration [Unknown]
  - Product quality issue [Unknown]
